FAERS Safety Report 5647556-9 (Version None)
Quarter: 2008Q1

REPORT INFORMATION
  Report Type: 
  Country: None (occurrence: None)
  Receive Date: 20080131
  Receipt Date: 20080131
  Transmission Date: 20080703
  Serious: No
  Sender: FDA-Public Use
  Company Number: 163-21880-07121380

PATIENT
  Age: 52 Year
  Sex: Male

DRUGS (1)
  1. REVLIMID [Suspect]
     Indication: MULTIPLE MYELOMA
     Dosage: 25 MG, DAILY ON DAYS 1-21, ORAL
     Route: 048
     Dates: start: 20071023

REACTIONS (3)
  - BREAST TENDERNESS [None]
  - LIBIDO DECREASED [None]
  - PRURITUS [None]
